APPROVED DRUG PRODUCT: FLUOCINONIDE
Active Ingredient: FLUOCINONIDE
Strength: 0.05%
Dosage Form/Route: OINTMENT;TOPICAL
Application: A075008 | Product #001 | TE Code: AB
Applicant: SUN PHARMA CANADA INC
Approved: Jun 30, 1999 | RLD: No | RS: Yes | Type: RX